FAERS Safety Report 4768973-5 (Version None)
Quarter: 2005Q3

REPORT INFORMATION
  Report Type: 
  Country: None (occurrence: None)
  Receive Date: 20050914
  Receipt Date: 20050907
  Transmission Date: 20060218
  Serious: Yes (Life-Threatening, Hospitalization)
  Sender: FDA-Public Use
  Company Number: 200512786GDS

PATIENT
  Age: 80 Year
  Sex: Male

DRUGS (2)
  1. MOXIFLOXACIN HCL [Suspect]
     Dosage: 400 MG, TOTAL DAILY, ORAL
     Route: 048
     Dates: start: 20050411, end: 20050414
  2. XUMADOL (PARACETAMOL) [Suspect]
     Dosage: 3 G, TOTAL DAILY, ORAL
     Route: 048
     Dates: start: 20050411, end: 20050414

REACTIONS (1)
  - DIARRHOEA [None]
